FAERS Safety Report 5200987-3 (Version None)
Quarter: 2007Q1

REPORT INFORMATION
  Report Type: 
  Country: None (occurrence: None)
  Receive Date: 20070108
  Receipt Date: 20070105
  Transmission Date: 20070707
  Serious: Yes (Hospitalization)
  Sender: FDA-Public Use
  Company Number: US-GLAXOSMITHKLINE-A0619410A

PATIENT
  Age: 40 Year
  Sex: Female

DRUGS (3)
  1. WELLBUTRIN XL [Suspect]
     Indication: DEPRESSION
     Dosage: 300MG PER DAY
     Route: 048
  2. PROZAC [Concomitant]
     Indication: DEPRESSION
     Dosage: 80MG PER DAY
     Route: 048
  3. AMBIEN [Concomitant]
     Indication: INSOMNIA
     Dosage: 10MG AT NIGHT
     Route: 048

REACTIONS (4)
  - CAESAREAN SECTION [None]
  - DRUG EXPOSURE DURING PREGNANCY [None]
  - PLACENTAL DISORDER [None]
  - SMALL FOR DATES BABY [None]
